FAERS Safety Report 7058820-3 (Version None)
Quarter: 2010Q4

REPORT INFORMATION
  Report Type: 
  Country: None (occurrence: None)
  Receive Date: 20101022
  Receipt Date: 20101008
  Transmission Date: 20110411
  Serious: Yes (Congenital Anomaly, Other)
  Sender: FDA-Public Use
  Company Number: NL-ELI_LILLY_AND_COMPANY-NL201008008478

PATIENT

DRUGS (4)
  1. PROZAC [Suspect]
     Route: 064
  2. ALCOHOL [Concomitant]
     Route: 064
  3. FOLIC ACID [Concomitant]
     Route: 064
  4. PARACETAMOL [Concomitant]
     Route: 064

REACTIONS (4)
  - ATRIAL SEPTAL DEFECT [None]
  - CONGENITAL MEGAURETER [None]
  - DRUG EXPOSURE DURING PREGNANCY [None]
  - X-LINKED CHROMOSOMAL DISORDER [None]
